FAERS Safety Report 14952021 (Version 2)
Quarter: 2018Q2

REPORT INFORMATION
  Report Type: Report from Study
  Country: US (occurrence: US)
  Receive Date: 20180530
  Receipt Date: 20180612
  Transmission Date: 20180711
  Serious: Yes (Hospitalization)
  Sender: FDA-Public Use
  Company Number: US-SA-2018SA057452

PATIENT
  Age: 58 Year
  Sex: Female
  Weight: 85.81 kg

DRUGS (19)
  1. MOMETASONE FUROATE. [Concomitant]
     Active Substance: MOMETASONE FUROATE
     Indication: DRUG THERAPY
     Dosage: 50 DF,QD
     Route: 045
     Dates: start: 201705
  2. FAMOTIDINE. [Concomitant]
     Active Substance: FAMOTIDINE
     Indication: PROPHYLAXIS
     Dosage: 20 MG,QD
     Route: 048
     Dates: start: 20070101
  3. VITAMIN C ACID [Concomitant]
     Active Substance: ASCORBIC ACID
  4. TRAMADOL. [Concomitant]
     Active Substance: TRAMADOL
     Indication: DRUG THERAPY
     Dosage: 50 MG,QD
     Route: 048
     Dates: start: 20100917
  5. IBUPROFEN. [Concomitant]
     Active Substance: IBUPROFEN
     Indication: PROPHYLAXIS
     Dosage: 200 MG,QD
     Route: 048
     Dates: start: 20081120
  6. CARISOPRODOL. [Concomitant]
     Active Substance: CARISOPRODOL
     Indication: DRUG THERAPY
     Dosage: 250 MG,QD
     Route: 048
     Dates: start: 20130322
  7. ALEMTUZUMAB [Suspect]
     Active Substance: ALEMTUZUMAB
     Dosage: UNK UNK,UNK
     Route: 041
     Dates: start: 20090921, end: 20090923
  8. ALEMTUZUMAB [Suspect]
     Active Substance: ALEMTUZUMAB
     Dosage: UNK UNK,UNK
     Route: 041
     Dates: start: 20140923, end: 20140925
  9. ESCITALOPRAM [Concomitant]
     Active Substance: ESCITALOPRAM OXALATE
     Indication: DRUG THERAPY
     Dosage: 20 MG,QD
     Route: 048
     Dates: start: 201408
  10. ALEMTUZUMAB [Suspect]
     Active Substance: ALEMTUZUMAB
     Indication: MULTIPLE SCLEROSIS
     Dosage: UNK UNK,UNK
     Route: 041
     Dates: start: 20080922, end: 20080926
  11. BROMFED-DM [Concomitant]
     Active Substance: BROMPHENIRAMINE MALEATE\DEXTROMETHORPHAN HYDROBROMIDE\PSEUDOEPHEDRINE HYDROCHLORIDE
     Indication: DRUG THERAPY
     Dosage: UNK UNK,QD
     Route: 048
     Dates: start: 20160816
  12. LATANOPROST. [Concomitant]
     Active Substance: LATANOPROST
     Indication: DRUG THERAPY
     Dosage: 1 DF,QD
     Route: 047
     Dates: start: 201610
  13. TIROSINT [Concomitant]
     Active Substance: LEVOTHYROXINE SODIUM
  14. VITAMIN D3 [Concomitant]
     Active Substance: CHOLECALCIFEROL
  15. NAPROXEN. [Concomitant]
     Active Substance: NAPROXEN
     Indication: PROPHYLAXIS
     Dosage: 800 MG,QD
     Route: 048
     Dates: start: 20150504
  16. ERGOCALCIFEROL. [Concomitant]
     Active Substance: ERGOCALCIFEROL
     Indication: PROPHYLAXIS
     Dosage: 250 MG,QD
     Route: 048
     Dates: start: 20130322
  17. LEVOTHYROXINE. [Concomitant]
     Active Substance: LEVOTHYROXINE
     Indication: DRUG THERAPY
     Dosage: 112 MG, QD
     Route: 048
     Dates: start: 20140117
  18. AMOXICILLIN. [Concomitant]
     Active Substance: AMOXICILLIN
     Indication: DRUG THERAPY
     Dosage: 500 MG,QD
     Route: 048
     Dates: start: 20160816
  19. KRILL OIL [Concomitant]
     Active Substance: DIETARY SUPPLEMENT
     Indication: PROPHYLAXIS
     Dosage: 300 MG,QD
     Route: 048
     Dates: start: 20140221

REACTIONS (2)
  - Exophthalmos [Recovered/Resolved]
  - Exophthalmos [Recovered/Resolved]

NARRATIVE: CASE EVENT DATE: 20180213
